FAERS Safety Report 8780172 (Version 1)
Quarter: 2012Q4

REPORT INFORMATION
  Report Type: Spontaneous
  Country: US (occurrence: None)
  Receive Date: 20120831
  Receipt Date: 20120831
  Transmission Date: 20130627
  Serious: No
  Sender: FDA-Public Use
  Company Number: None

PATIENT
  Age: 63 Year
  Sex: Male
  Weight: 87.5 kg

DRUGS (2)
  1. BOCEPREVIR [Suspect]
     Dosage: MG
     Route: 048
     Dates: start: 20120508, end: 20120514
  2. PEGINTERFERON [Suspect]
     Dates: start: 20120410, end: 20120514

REACTIONS (2)
  - Leukopenia [None]
  - Dyspnoea [None]
